FAERS Safety Report 10448966 (Version 2)
Quarter: 2014Q4

REPORT INFORMATION
  Report Type: Spontaneous
  Country: IT (occurrence: IT)
  Receive Date: 20140912
  Receipt Date: 20141128
  Transmission Date: 20150528
  Serious: Yes (Hospitalization, Other)
  Sender: FDA-Public Use
  Company Number: IT-BRISTOL-MYERS SQUIBB COMPANY-21365804

PATIENT
  Age: 84 Year
  Sex: Male

DRUGS (10)
  1. PANTORC [Concomitant]
     Active Substance: PANTOPRAZOLE SODIUM
  2. CARDIOASPIRIN [Interacting]
     Active Substance: ASPIRIN
     Indication: ACUTE MYOCARDIAL INFARCTION
     Dosage: INTER:29JUL2014
     Route: 048
     Dates: start: 20080701
  3. COUMADIN [Suspect]
     Active Substance: WARFARIN SODIUM
     Indication: CEREBROVASCULAR ACCIDENT PROPHYLAXIS
     Dosage: INTERRUPT:29JUL2014
     Route: 048
     Dates: start: 20060701
  4. ALLOPURINOL. [Concomitant]
     Active Substance: ALLOPURINOL
  5. ENAPREN [Concomitant]
     Active Substance: ENALAPRIL MALEATE
  6. RANEXA [Concomitant]
     Active Substance: RANOLAZINE
  7. DILATREND [Concomitant]
     Active Substance: CARVEDILOL
  8. KANRENOL [Concomitant]
     Active Substance: CANRENOATE POTASSIUM
  9. OMNIC [Concomitant]
     Active Substance: TAMSULOSIN HYDROCHLORIDE
  10. LASIX [Concomitant]
     Active Substance: FUROSEMIDE

REACTIONS (3)
  - Haemarthrosis [Recovering/Resolving]
  - Injury [Unknown]
  - Drug interaction [Unknown]

NARRATIVE: CASE EVENT DATE: 20140730
